FAERS Safety Report 14075153 (Version 5)
Quarter: 2020Q2

REPORT INFORMATION
  Report Type: Report from Study
  Country: US (occurrence: US)
  Receive Date: 20171011
  Receipt Date: 20200602
  Transmission Date: 20200713
  Serious: Yes (Hospitalization)
  Sender: FDA-Public Use
  Company Number: US-ACTELION-A-NJ2017-160858

PATIENT
  Age: 56 Year
  Sex: Female

DRUGS (3)
  1. OPSUMIT [Suspect]
     Active Substance: MACITENTAN
     Indication: PULMONARY ARTERIAL HYPERTENSION
     Dosage: 10 MG, QD
     Route: 048
     Dates: start: 20141107
  2. OPSUMIT [Suspect]
     Active Substance: MACITENTAN
     Dosage: 10 MG, QD
     Route: 048
  3. MYCOPHENOLATE [Suspect]
     Active Substance: MYCOPHENOLIC ACID
     Indication: SCLERODERMA
     Dosage: UNK
     Route: 065
     Dates: start: 202004

REACTIONS (8)
  - Gastrooesophageal reflux disease [Unknown]
  - Musculoskeletal stiffness [Unknown]
  - Tooth injury [Unknown]
  - Hypoaesthesia [Unknown]
  - Kidney infection [Unknown]
  - Oral infection [Unknown]
  - Unevaluable event [Unknown]
  - Pain in extremity [Unknown]

NARRATIVE: CASE EVENT DATE: 201709
